FAERS Safety Report 8883982 (Version 2)
Quarter: 2013Q4

REPORT INFORMATION
  Report Type: Spontaneous
  Country: US (occurrence: US)
  Receive Date: 20121102
  Receipt Date: 20131011
  Transmission Date: 20140711
  Serious: No
  Sender: FDA-Public Use
  Company Number: US-ASTRAZENECA-2012SE25574

PATIENT
  Age: 56 Year
  Sex: Male
  Weight: 83.5 kg

DRUGS (11)
  1. CRESTOR [Suspect]
     Indication: BLOOD CHOLESTEROL INCREASED
     Route: 048
     Dates: end: 201010
  2. LIPITOR [Suspect]
     Dosage: BEFORE CRESTOR
  3. LIPITOR [Suspect]
     Dates: start: 201010
  4. PREVACID [Concomitant]
  5. ALLOPURINOL [Concomitant]
  6. SYNTHROID [Concomitant]
  7. TRAMADOL [Concomitant]
  8. AMBIEN [Concomitant]
  9. FLEXERIL [Concomitant]
     Indication: MUSCLE SPASMS
  10. ASPIRIN [Concomitant]
  11. VITAMINS [Concomitant]

REACTIONS (2)
  - Weight decreased [Not Recovered/Not Resolved]
  - Weight fluctuation [Not Recovered/Not Resolved]
